FAERS Safety Report 25689393 (Version 2)
Quarter: 2025Q4

REPORT INFORMATION
  Report Type: Spontaneous
  Country: US (occurrence: US)
  Receive Date: 20250818
  Receipt Date: 20251028
  Transmission Date: 20260118
  Serious: No
  Sender: ABBVIE
  Company Number: US-ABBVIE-6418804

PATIENT
  Age: 51 Year
  Sex: Female
  Weight: 101 kg

DRUGS (2)
  1. SYNTHROID [Suspect]
     Active Substance: LEVOTHYROXINE SODIUM
     Indication: Hypothyroidism
     Route: 048
     Dates: start: 201203, end: 20130517
  2. LIOTHYRONINE [Concomitant]
     Active Substance: LIOTHYRONINE
     Indication: Product used for unknown indication
     Dates: start: 202507

REACTIONS (6)
  - Weight increased [Unknown]
  - Palpitations [Unknown]
  - Feeling cold [Unknown]
  - Brain fog [Unknown]
  - Alopecia [Unknown]
  - Visual impairment [Unknown]
